FAERS Safety Report 25130778 (Version 2)
Quarter: 2025Q2

REPORT INFORMATION
  Report Type: Spontaneous
  Country: IT (occurrence: IT)
  Receive Date: 20250327
  Receipt Date: 20250411
  Transmission Date: 20250717
  Serious: Yes (Hospitalization)
  Sender: TEVA
  Company Number: IT-TEVA-VS-3311917

PATIENT
  Age: 45 Year
  Sex: Male

DRUGS (3)
  1. DAPTOMYCIN [Suspect]
     Active Substance: DAPTOMYCIN
     Indication: Evidence based treatment
     Route: 042
  2. PIPERACILLIN SODIUM\TAZOBACTAM SODIUM [Suspect]
     Active Substance: PIPERACILLIN SODIUM\TAZOBACTAM SODIUM
     Indication: Evidence based treatment
     Route: 042
  3. DEVICE [Suspect]
     Active Substance: DEVICE
     Indication: Radioembolisation
     Route: 065

REACTIONS (3)
  - Urticaria [Unknown]
  - Infarction [Recovering/Resolving]
  - Spinal cord disorder [Recovering/Resolving]
